FAERS Safety Report 6676472-9 (Version None)
Quarter: 2010Q2

REPORT INFORMATION
  Report Type: 
  Country: None (occurrence: None)
  Receive Date: 20100412
  Receipt Date: 20100407
  Transmission Date: 20101027
  Serious: Yes (Death, Other)
  Sender: FDA-Public Use
  Company Number: PHHY2010US21867

PATIENT
  Sex: Male

DRUGS (1)
  1. GLEEVEC [Suspect]
     Indication: CHRONIC MYELOID LEUKAEMIA
     Dosage: 400 MG, ONCE A DAY
     Route: 048
     Dates: start: 20100128

REACTIONS (2)
  - ACUTE MYOCARDIAL INFARCTION [None]
  - CHRONIC MYELOID LEUKAEMIA TRANSFORMATION [None]
